FAERS Safety Report 4318971-0 (Version None)
Quarter: 2004Q1

REPORT INFORMATION
  Report Type: 
  Country: None (occurrence: None)
  Receive Date: 20040317
  Receipt Date: 20040317
  Transmission Date: 20041129
  Serious: No
  Sender: FDA-Public Use
  Company Number: None

PATIENT
  Age: 63 Year
  Sex: Male

DRUGS (13)
  1. INDOMETHACIN [Suspect]
     Dosage: 25 MG TID
  2. WARFARIN SODIUM [Concomitant]
  3. ASCORBIC ACID [Concomitant]
  4. ASPIRIN [Concomitant]
  5. FUROSEMIDE [Concomitant]
  6. INSULIN NPH/REGULAR [Concomitant]
  7. LISINOPRIL [Concomitant]
  8. METFORMIN HCL [Concomitant]
  9. NICAIN ERT [Concomitant]
  10. PIOGLITAZONE HCL [Concomitant]
  11. PROPRANOLOL [Concomitant]
  12. RANITIDINE [Concomitant]
  13. SIMVASTATIN [Concomitant]

REACTIONS (1)
  - GASTROINTESTINAL HAEMORRHAGE [None]
